FAERS Safety Report 12879116 (Version 1)
Quarter: 2016Q4

REPORT INFORMATION
  Report Type: Spontaneous
  Country: JP (occurrence: JP)
  Receive Date: 20161024
  Receipt Date: 20161024
  Transmission Date: 20170207
  Serious: Yes (Death)
  Sender: FDA-Public Use
  Company Number: JP-ROCHE-1819816

PATIENT
  Age: 64 Year
  Sex: Male
  Weight: 53 kg

DRUGS (12)
  1. AVASTIN [Suspect]
     Active Substance: BEVACIZUMAB
     Indication: NON-SMALL CELL LUNG CANCER
     Dosage: TREATMENT LINE: 1-2?COMPLETED TREATMENT CYCLE NUMBER: 2
     Route: 041
     Dates: start: 20160630, end: 20160729
  2. PANVITAN [Concomitant]
     Indication: FOLATE DEFICIENCY
     Dosage: DOSAGE IS UNCERTAIN.
     Route: 065
     Dates: start: 20160614, end: 20160801
  3. DECADRON [Concomitant]
     Active Substance: DEXAMETHASONE
     Indication: PROPHYLAXIS
     Route: 048
     Dates: start: 20160528, end: 20160528
  4. OXINORM (JAPAN) [Concomitant]
     Active Substance: OXYCODONE HYDROCHLORIDE
     Indication: ABDOMINAL PAIN
     Dosage: SINGLE USE
     Route: 048
     Dates: start: 20160702, end: 20160801
  5. NEXIUM [Concomitant]
     Active Substance: ESOMEPRAZOLE MAGNESIUM
     Indication: METASTASES TO STOMACH
     Route: 048
     Dates: start: 20160516, end: 20160801
  6. NOVAMIN (AMIKACIN SULFATE) [Concomitant]
     Active Substance: AMIKACIN SULFATE
     Indication: NAUSEA
     Route: 048
     Dates: start: 20160718, end: 20160801
  7. CARBOPLATIN. [Concomitant]
     Active Substance: CARBOPLATIN
     Indication: NON-SMALL CELL LUNG CANCER
     Dosage: COMPLETED TREATMENT CYCLE NUMBER: 2
     Route: 041
     Dates: start: 20160630, end: 20160729
  8. PEMETREXED SODIUM HYDRATE [Concomitant]
     Active Substance: PEMETREXED
     Indication: NON-SMALL CELL LUNG CANCER
     Dosage: COMPLETED TREATMENT CYCLE NUMBER: 2
     Route: 041
     Dates: start: 20160630, end: 20160729
  9. CODEINE PHOSPHATE [Concomitant]
     Active Substance: CODEINE PHOSPHATE
     Indication: COUGH
     Dosage: SINGLE USE
     Route: 048
     Dates: start: 20160716, end: 20160801
  10. OXYCONTIN [Concomitant]
     Active Substance: OXYCODONE HYDROCHLORIDE
     Indication: ABDOMINAL PAIN
     Route: 048
     Dates: start: 20160718, end: 20160801
  11. DENOTAS [Concomitant]
     Active Substance: CALCIUM CARBONATE\CHOLECALCIFEROL\MAGNESIUM CARBONATE
     Indication: HYPOCALCAEMIA
     Route: 048
     Dates: start: 20160716, end: 20160801
  12. NEXIUM [Concomitant]
     Active Substance: ESOMEPRAZOLE MAGNESIUM
     Indication: GASTROOESOPHAGEAL REFLUX DISEASE

REACTIONS (3)
  - Gastrointestinal perforation [Fatal]
  - Peritonitis [Fatal]
  - Shock [Fatal]

NARRATIVE: CASE EVENT DATE: 20160801
